FAERS Safety Report 24022895 (Version 4)
Quarter: 2024Q3

REPORT INFORMATION
  Report Type: Report from Study
  Country: CN (occurrence: CN)
  Receive Date: 20240627
  Receipt Date: 20240710
  Transmission Date: 20241017
  Serious: No
  Sender: ROCHE
  Company Number: CN-ROCHE-3288094

PATIENT
  Age: 60 Year
  Sex: Female
  Weight: 75.0 kg

DRUGS (6)
  1. ALECTINIB [Suspect]
     Active Substance: ALECTINIB
     Indication: Lung cancer metastatic
     Route: 048
     Dates: start: 20210715
  2. URSODIOL [Concomitant]
     Active Substance: URSODIOL
     Dosage: MEDICATION INDICATION: BLOOD BILIRUBIN HEIGHTEN SYMPTOMATIC TREATMENT
     Route: 048
     Dates: start: 20210714
  3. COMPOUND GLYCYRRHIZA [Concomitant]
     Dosage: MEDICATION DOSE 1 TABLET, MEDICATION INDICATION: SYMPTOMATIC TREATMENT OF PHLEGM
     Route: 048
     Dates: start: 20230104, end: 20230111
  4. CLARITHROMYCIN [Concomitant]
     Active Substance: CLARITHROMYCIN
     Dates: start: 20230107, end: 20230111
  5. AMBROXOL HYDROCHLORIDE [Concomitant]
     Active Substance: AMBROXOL HYDROCHLORIDE
     Dates: start: 20230107, end: 20230110
  6. ACETYLCYSTEINE [Concomitant]
     Active Substance: ACETYLCYSTEINE
     Dates: start: 20230110, end: 20230111

REACTIONS (1)
  - COVID-19 [Recovered/Resolved]

NARRATIVE: CASE EVENT DATE: 20221201
